FAERS Safety Report 15611164 (Version 2)
Quarter: 2019Q2

REPORT INFORMATION
  Report Type: Spontaneous
  Country: US (occurrence: US)
  Receive Date: 20181113
  Receipt Date: 20190507
  Transmission Date: 20190711
  Serious: Yes (Other)
  Sender: FDA-Public Use
  Company Number: US-ASTRAZENECA-2018SF46210

PATIENT
  Age: 654 Month
  Sex: Female

DRUGS (17)
  1. NIFEDIPINE. [Concomitant]
     Active Substance: NIFEDIPINE
  2. AMLODIPINE [Concomitant]
     Active Substance: AMLODIPINE BESYLATE
  3. ATENOLOL. [Concomitant]
     Active Substance: ATENOLOL
  4. CLARITIN [Concomitant]
     Active Substance: LORATADINE
  5. HYDROCHLOROTHIAZIDE. [Concomitant]
     Active Substance: HYDROCHLOROTHIAZIDE
  6. SIMVASTATIN. [Concomitant]
     Active Substance: SIMVASTATIN
  7. ZANTAC [Concomitant]
     Active Substance: RANITIDINE HYDROCHLORIDE
  8. COLCHICINE. [Concomitant]
     Active Substance: COLCHICINE
  9. ASPIRIN. [Concomitant]
     Active Substance: ASPIRIN
  10. FISH OIL [Concomitant]
     Active Substance: FISH OIL
  11. VITAMIN D3 [Concomitant]
     Active Substance: CHOLECALCIFEROL
  12. MULTIVITAMIN [Concomitant]
     Active Substance: VITAMINS
  13. NIACIN. [Concomitant]
     Active Substance: NIACIN
  14. PROTONIX [Suspect]
     Active Substance: PANTOPRAZOLE SODIUM
     Indication: GASTROOESOPHAGEAL REFLUX DISEASE
     Route: 065
     Dates: start: 200402
  15. PRILOSEC OTC [Suspect]
     Active Substance: OMEPRAZOLE MAGNESIUM
     Indication: GASTROOESOPHAGEAL REFLUX DISEASE
     Route: 048
     Dates: start: 2004, end: 2014
  16. PRILOSEC OTC [Suspect]
     Active Substance: OMEPRAZOLE MAGNESIUM
     Indication: GASTROOESOPHAGEAL REFLUX DISEASE
     Route: 048
     Dates: start: 201001, end: 201411
  17. PREVACID [Suspect]
     Active Substance: LANSOPRAZOLE
     Indication: GASTROOESOPHAGEAL REFLUX DISEASE
     Route: 065
     Dates: start: 200606

REACTIONS (2)
  - Chronic kidney disease [Not Recovered/Not Resolved]
  - Renal failure [Unknown]

NARRATIVE: CASE EVENT DATE: 201511
